FAERS Safety Report 6407332-6 (Version None)
Quarter: 2009Q4

REPORT INFORMATION
  Report Type: 
  Country: None (occurrence: None)
  Receive Date: 20091020
  Receipt Date: 20091008
  Transmission Date: 20100525
  Serious: Yes (Hospitalization)
  Sender: FDA-Public Use
  Company Number: B0598356A

PATIENT
  Age: 34 Year
  Sex: Male

DRUGS (9)
  1. ZIDOVUDINE [Suspect]
     Indication: HIV INFECTION
     Route: 065
  2. LAMIVUDINE [Suspect]
     Indication: HIV INFECTION
     Route: 065
  3. DIDANOSINE [Suspect]
     Route: 065
  4. INDINAVIR [Suspect]
  5. STAVUDINE [Suspect]
  6. NELFINAVIR MESYLATE [Suspect]
  7. TENOFOVIR [Suspect]
  8. EFAVIRENZ [Suspect]
  9. LOPINAVIR AND RITONAVIR [Suspect]

REACTIONS (9)
  - ARTERIAL OCCLUSIVE DISEASE [None]
  - CHEST PAIN [None]
  - ELECTROCARDIOGRAM ST SEGMENT DEPRESSION [None]
  - ELECTROCARDIOGRAM ST-T SEGMENT DEPRESSION [None]
  - HYPERHIDROSIS [None]
  - MYOCARDIAL INFARCTION [None]
  - NEUTROPENIA [None]
  - PALPITATIONS [None]
  - SINUS TACHYCARDIA [None]
